FAERS Safety Report 17665539 (Version 1)
Quarter: 2020Q2

REPORT INFORMATION
  Report Type: Spontaneous
  Country: US (occurrence: US)
  Receive Date: 20200414
  Receipt Date: 20200414
  Transmission Date: 20200713
  Serious: Yes (Other)
  Sender: FDA-Public Use
  Company Number: None

PATIENT
  Age: 20 Year
  Sex: Male
  Weight: 46 kg

DRUGS (7)
  1. CLOBAZAM ORAL SUSPENSION [Concomitant]
     Active Substance: CLOBAZAM
     Dates: start: 20200402
  2. LEVETIRACETAM ORAL LIQUID [Concomitant]
     Dates: start: 20200402
  3. DICYCLOMINE ORAL LIQUID [Concomitant]
     Dates: start: 20200402
  4. PHENOBARBITAL ORAL LIQUID [Concomitant]
     Dates: start: 20200402
  5. TRIMETHOPRIM-SULFAMETHOXAZOLE ORAL SUSPENSION [Concomitant]
     Dates: start: 20200402
  6. LEVOFLOXACIN. [Suspect]
     Active Substance: LEVOFLOXACIN
     Indication: PNEUMONIA
     Route: 040
     Dates: start: 20200402, end: 20200402
  7. ALBUTEROL INHALATION [Concomitant]
     Active Substance: ALBUTEROL
     Dates: start: 20200402

REACTIONS (3)
  - Haematemesis [None]
  - Agitation [None]
  - Gastric occult blood positive [None]

NARRATIVE: CASE EVENT DATE: 20200402
